FAERS Safety Report 9448143 (Version 1)
Quarter: 2013Q3

REPORT INFORMATION
  Report Type: Spontaneous
  Country: US (occurrence: US)
  Receive Date: 20130808
  Receipt Date: 20130808
  Transmission Date: 20140515
  Serious: No
  Sender: FDA-Public Use
  Company Number: US-B.I. PHARMACEUTICALS,INC./RIDGEFIELD-2013-BI-23273BP

PATIENT
  Age: 90 Year
  Sex: Male
  Weight: 107 kg

DRUGS (4)
  1. COMBIVENT [Suspect]
     Indication: CHRONIC OBSTRUCTIVE PULMONARY DISEASE
     Dosage: STRENGTH: 20 MCG / 100 MCG; DAILY DOSE: 160MCG/1004MCG
     Route: 055
     Dates: start: 201305
  2. ALEVE [Concomitant]
     Indication: ARTHRITIS
     Dosage: (CAPLET)
     Route: 048
  3. HYDROCHLOROTHIAZIDE [Concomitant]
     Indication: BLOOD PRESSURE INCREASED
     Dosage: 50 MG
     Route: 048
  4. GABAPENTIN [Concomitant]
     Dosage: 100 MG
     Route: 048

REACTIONS (1)
  - Drug administration error [Not Recovered/Not Resolved]
